FAERS Safety Report 16488172 (Version 1)
Quarter: 2019Q2

REPORT INFORMATION
  Report Type: Report from Study
  Country: PK (occurrence: PK)
  Receive Date: 20190627
  Receipt Date: 20190627
  Transmission Date: 20190711
  Serious: Yes (Death)
  Sender: FDA-Public Use
  Company Number: PHHY2019PK147663

PATIENT
  Sex: Male
  Weight: 43 kg

DRUGS (1)
  1. TASIGNA [Suspect]
     Active Substance: NILOTINIB
     Indication: CHRONIC MYELOID LEUKAEMIA
     Dosage: 800 MG, (200 MG X4 TIMES DAY)
     Route: 048
     Dates: start: 20140720, end: 20180302

REACTIONS (1)
  - Death [Fatal]
